FAERS Safety Report 23676225 (Version 1)
Quarter: 2024Q1

REPORT INFORMATION
  Report Type: Report from Study
  Country: US (occurrence: US)
  Receive Date: 20240327
  Receipt Date: 20240327
  Transmission Date: 20240409
  Serious: Yes (Hospitalization)
  Sender: FDA-Public Use
  Company Number: US-ABBVIE-5689893

PATIENT
  Sex: Female

DRUGS (1)
  1. HUMIRA [Suspect]
     Active Substance: ADALIMUMAB
     Indication: Hidradenitis
     Dosage: FORM STRENGTH 40 MG CITRATE FREE
     Route: 058
     Dates: start: 20231009

REACTIONS (4)
  - Pain [Unknown]
  - Swelling [Unknown]
  - Hidradenitis [Not Recovered/Not Resolved]
  - Liver disorder [Unknown]
